FAERS Safety Report 16409977 (Version 1)
Quarter: 2019Q2

REPORT INFORMATION
  Report Type: Spontaneous
  Country: US (occurrence: US)
  Receive Date: 20190502
  Receipt Date: 20190502
  Transmission Date: 20190711
  Serious: Yes (Other)
  Sender: FDA-Public Use
  Company Number: None

PATIENT
  Age: 67 Year
  Sex: Female
  Weight: 104.33 kg

DRUGS (10)
  1. MOVE FREE ULTRA [Concomitant]
  2. VITAMIN C [Concomitant]
     Active Substance: ASCORBIC ACID
  3. FISH OIL [Concomitant]
     Active Substance: FISH OIL
  4. MESTINON GENERIC (PYRIDOSTIGMINE) [Concomitant]
  5. CENTRIUM SILVER [Concomitant]
  6. VITAMIN B12 [Concomitant]
     Active Substance: CYANOCOBALAMIN
  7. FIRDAPSE [Suspect]
     Active Substance: AMIFAMPRIDINE
     Indication: MYASTHENIC SYNDROME
     Dosage: ?          QUANTITY:10 MG MILLIGRAM(S);?
     Route: 048
     Dates: start: 20190123
  8. IMURAN [Concomitant]
     Active Substance: AZATHIOPRINE
  9. OXYBUTYNIN (DITROPAN) [Concomitant]
  10. ELLURA EXTRACT CRANBERRY [Concomitant]

REACTIONS (9)
  - Feeling abnormal [None]
  - Muscle spasms [None]
  - Nausea [None]
  - Paraesthesia oral [None]
  - Breast pain [None]
  - Dry mouth [None]
  - Rash [None]
  - Dysphagia [None]
  - Fatigue [None]

NARRATIVE: CASE EVENT DATE: 20190123
